FAERS Safety Report 7665183-9 (Version None)
Quarter: 2011Q3

REPORT INFORMATION
  Report Type: 
  Country: None (occurrence: None)
  Receive Date: 20110806
  Receipt Date: 20110614
  Transmission Date: 20111222
  Serious: No
  Sender: FDA-Public Use
  Company Number: US-ABBOTT-11P-163-0732556-00

PATIENT
  Sex: Female

DRUGS (11)
  1. LEXAPRO [Concomitant]
     Indication: DEPRESSION
  2. LORTAB [Concomitant]
     Indication: PAIN
  3. DIOVAN HCT [Concomitant]
     Indication: HYPERTENSION
  4. ATENOLOL [Concomitant]
     Indication: HYPERTENSION
  5. NIASPAN [Suspect]
     Indication: BLOOD CHOLESTEROL INCREASED
     Route: 048
     Dates: start: 20110501, end: 20110601
  6. AGGRENOX [Concomitant]
     Indication: HYPERTENSION
  7. AMLODIPINE [Concomitant]
     Indication: HYPERTENSION
  8. OMEPRAZOLE [Concomitant]
     Indication: GASTRIC DISORDER
  9. NIASPAN [Suspect]
     Route: 048
     Dates: start: 20110602
  10. TRAZODONE HCL [Concomitant]
     Indication: INSOMNIA
  11. POTASSIUM CHLORIDE [Concomitant]
     Indication: BLOOD POTASSIUM DECREASED

REACTIONS (2)
  - FLUSHING [None]
  - PRURITUS [None]
